FAERS Safety Report 7858927-4 (Version None)
Quarter: 2011Q4

REPORT INFORMATION
  Report Type: 
  Country: None (occurrence: None)
  Receive Date: 20111027
  Receipt Date: 20111017
  Transmission Date: 20120403
  Serious: Yes (Other)
  Sender: FDA-Public Use
  Company Number: US-BAYER-2011-050158

PATIENT
  Age: 17 Year
  Sex: Female
  Weight: 60.317 kg

DRUGS (5)
  1. YAZ [Suspect]
     Dosage: UNK
     Dates: start: 20070808, end: 20100107
  2. BACTRIM DS [Concomitant]
     Dosage: 1 DF, TID
     Dates: start: 20090508
  3. KAPIDEX [Concomitant]
     Dosage: 60 MG, UNK
     Dates: start: 20090429, end: 20090430
  4. YASMIN [Suspect]
     Dosage: UNK
     Dates: start: 20070808, end: 20100107
  5. ZOLOFT [Concomitant]
     Dosage: 50 MG, UNK
     Route: 048
     Dates: start: 20090520

REACTIONS (8)
  - INJURY [None]
  - EMOTIONAL DISTRESS [None]
  - GALLBLADDER INJURY [None]
  - CHOLECYSTITIS CHRONIC [None]
  - PAIN [None]
  - SCAR [None]
  - ANXIETY [None]
  - GENERAL PHYSICAL HEALTH DETERIORATION [None]
